FAERS Safety Report 5461144-9 (Version None)
Quarter: 2007Q3

REPORT INFORMATION
  Report Type: 
  Country: None (occurrence: None)
  Receive Date: 20070920
  Receipt Date: 20070917
  Transmission Date: 20080115
  Serious: Yes (Hospitalization)
  Sender: FDA-Public Use
  Company Number: PHHO2007IN01757

PATIENT
  Age: 62 Year
  Sex: Female
  Weight: 66 kg

DRUGS (2)
  1. ALISKIREN/AMLODIPINE [Suspect]
     Indication: ESSENTIAL HYPERTENSION
     Dosage: 300 MG, QD
     Route: 048
     Dates: start: 20061209
  2. AMLODIPINE [Suspect]
     Indication: ESSENTIAL HYPERTENSION
     Dosage: 10 MG, QD
     Route: 048
     Dates: start: 20061209

REACTIONS (4)
  - ASTHMA [None]
  - CHRONIC OBSTRUCTIVE PULMONARY DISEASE [None]
  - DISEASE PROGRESSION [None]
  - RESPIRATORY TRACT INFECTION [None]
